FAERS Safety Report 7228503-5 (Version None)
Quarter: 2011Q1

REPORT INFORMATION
  Report Type: 
  Country: None (occurrence: None)
  Receive Date: 20110117
  Receipt Date: 20110111
  Transmission Date: 20110831
  Serious: Yes (Other)
  Sender: FDA-Public Use
  Company Number: US-AMGEN-USASP2011001764

PATIENT

DRUGS (1)
  1. ENBREL [Suspect]
     Indication: ANKYLOSING SPONDYLITIS
     Dosage: 50 MG, QWK
     Dates: start: 20100501, end: 20101217

REACTIONS (7)
  - ARTHRALGIA [None]
  - VENOUS THROMBOSIS LIMB [None]
  - BRONCHITIS [None]
  - RASH [None]
  - DRUG INEFFECTIVE [None]
  - PERIPHERAL VASCULAR DISORDER [None]
  - PNEUMONIA [None]
